FAERS Safety Report 11499813 (Version 1)
Quarter: 2015Q3

REPORT INFORMATION
  Report Type: Spontaneous
  Country: US (occurrence: US)
  Receive Date: 20150914
  Receipt Date: 20150914
  Transmission Date: 20151125
  Serious: No
  Sender: FDA-Public Use
  Company Number: US-ASTRAZENECA-2015SE85344

PATIENT
  Age: 28277 Day
  Sex: Male
  Weight: 99.8 kg

DRUGS (7)
  1. ONGLYZA [Suspect]
     Active Substance: SAXAGLIPTIN HYDROCHLORIDE
     Indication: TYPE 2 DIABETES MELLITUS
     Dosage: DAILY
     Route: 048
  2. FLOMAX [Concomitant]
     Active Substance: TAMSULOSIN HYDROCHLORIDE
     Dosage: DAILY
  3. FARXIGA [Suspect]
     Active Substance: DAPAGLIFLOZIN PROPANEDIOL
     Indication: TYPE 2 DIABETES MELLITUS
     Route: 048
     Dates: start: 20150901
  4. SIMVASTATIN. [Concomitant]
     Active Substance: SIMVASTATIN
     Dosage: DAILY
     Route: 048
  5. GLIPIZIDE. [Concomitant]
     Active Substance: GLIPIZIDE
     Indication: TYPE 2 DIABETES MELLITUS
     Dosage: DAILY
     Route: 048
  6. NIFEDIPINE. [Concomitant]
     Active Substance: NIFEDIPINE
     Dosage: DAILY
     Route: 048
  7. METFORMIN [Concomitant]
     Active Substance: METFORMIN HYDROCHLORIDE
     Indication: TYPE 2 DIABETES MELLITUS
     Dosage: DAILY
     Route: 048

REACTIONS (1)
  - Diarrhoea [Not Recovered/Not Resolved]

NARRATIVE: CASE EVENT DATE: 20150901
